FAERS Safety Report 24466907 (Version 1)
Quarter: 2024Q4

REPORT INFORMATION
  Report Type: Spontaneous
  Country: US (occurrence: US)
  Receive Date: 20241018
  Receipt Date: 20241018
  Transmission Date: 20250115
  Serious: No
  Sender: ROCHE
  Company Number: US-ROCHE-3547467

PATIENT
  Age: 54 Year
  Sex: Female

DRUGS (1)
  1. XOLAIR [Suspect]
     Active Substance: OMALIZUMAB
     Indication: Product used for unknown indication
     Route: 065
     Dates: start: 20240402, end: 20240402

REACTIONS (3)
  - Urticaria [Recovered/Resolved]
  - Eye swelling [Not Recovered/Not Resolved]
  - C-reactive protein increased [Not Recovered/Not Resolved]

NARRATIVE: CASE EVENT DATE: 20240402
